FAERS Safety Report 21187601 (Version 2)
Quarter: 2022Q3

REPORT INFORMATION
  Report Type: Report from Study
  Country: CA (occurrence: CA)
  Receive Date: 20220808
  Receipt Date: 20220825
  Transmission Date: 20221027
  Serious: Yes (Hospitalization)
  Sender: FDA-Public Use
  Company Number: CA-JNJFOC-20220806758

PATIENT
  Age: 38 Year
  Sex: Female

DRUGS (7)
  1. EPOPROSTENOL SODIUM [Suspect]
     Active Substance: EPOPROSTENOL SODIUM
     Indication: Pulmonary arterial hypertension
     Dosage: 4.5 (G/KG MICROGRAM(S)/KILOGRAM
     Route: 042
     Dates: start: 20210414
  2. MACITENTAN [Suspect]
     Active Substance: MACITENTAN
     Indication: Pulmonary arterial hypertension
     Route: 048
     Dates: start: 20210327
  3. TYLENOL [Concomitant]
     Active Substance: ACETAMINOPHEN
  4. WARFARIN [Concomitant]
     Active Substance: WARFARIN
  5. FUROSEMIDE [Concomitant]
     Active Substance: FUROSEMIDE
  6. IMODIUM [Concomitant]
     Active Substance: LOPERAMIDE HYDROCHLORIDE
  7. ADCIRCA [Concomitant]
     Active Substance: TADALAFIL

REACTIONS (4)
  - Device related infection [Recovering/Resolving]
  - Dizziness [Recovering/Resolving]
  - COVID-19 [Recovering/Resolving]
  - Liver disorder [Not Recovered/Not Resolved]

NARRATIVE: CASE EVENT DATE: 20220729
